FAERS Safety Report 8557547-6 (Version None)
Quarter: 2012Q3

REPORT INFORMATION
  Report Type: 
  Country: None (occurrence: None)
  Receive Date: 20120801
  Receipt Date: 20120723
  Transmission Date: 20120928
  Serious: Yes (Disabling)
  Sender: FDA-Public Use
  Company Number: US-ASTRAZENECA-2011SE05703

PATIENT
  Age: 85 Year
  Sex: Male
  Weight: 108 kg

DRUGS (5)
  1. SYMBICORT [Suspect]
     Dosage: ONE PUFF DAILY
     Route: 055
  2. SUGAR PILL [Concomitant]
  3. SYMBICORT [Suspect]
     Indication: CHRONIC OBSTRUCTIVE PULMONARY DISEASE
     Dosage: 160/ 4.5 DAILY
     Route: 055
  4. SYMBICORT [Suspect]
     Dosage: TWO PUFF DAILY
     Route: 055
  5. SYMBICORT [Suspect]
     Dosage: TWO PUFFS TWO TIMES A DAY
     Route: 055

REACTIONS (11)
  - ARTHROPATHY [None]
  - DYSPNOEA [None]
  - GAIT DISTURBANCE [None]
  - FATIGUE [None]
  - INTENTIONAL DRUG MISUSE [None]
  - OROPHARYNGEAL PAIN [None]
  - MUSCULOSKELETAL DISCOMFORT [None]
  - PNEUMONIA [None]
  - CHRONIC OBSTRUCTIVE PULMONARY DISEASE [None]
  - ASTHMA [None]
  - LIMB DISCOMFORT [None]
